FAERS Safety Report 22634236 (Version 10)
Quarter: 2025Q2

REPORT INFORMATION
  Report Type: Spontaneous
  Country: US (occurrence: US)
  Receive Date: 20230623
  Receipt Date: 20250522
  Transmission Date: 20250716
  Serious: No
  Sender: PFIZER
  Company Number: US-PFIZER INC-PV202300082855

PATIENT
  Age: 66 Year
  Sex: Female
  Weight: 88.45 kg

DRUGS (2)
  1. BOSULIF [Suspect]
     Active Substance: BOSUTINIB MONOHYDRATE
     Indication: Chronic myeloid leukaemia
     Dosage: 100 MG, 2X/DAY
     Route: 048
     Dates: start: 20230421
  2. BOSULIF [Suspect]
     Active Substance: BOSUTINIB MONOHYDRATE
     Dosage: 100 MG, 1X/DAY (1 TABLET (100 MG) ONCE DAILY. AVOID ANTACID USE IF POSSIBLE WHILE TAKING)
     Route: 048
     Dates: start: 20230628

REACTIONS (4)
  - Tongue discomfort [Unknown]
  - Dysgeusia [Unknown]
  - Rash [Unknown]
  - Off label use [Unknown]

NARRATIVE: CASE EVENT DATE: 20230101
